FAERS Safety Report 16130965 (Version 1)
Quarter: 2019Q1

REPORT INFORMATION
  Report Type: Spontaneous
  Country: GB (occurrence: IT)
  Receive Date: 20190328
  Receipt Date: 20190328
  Transmission Date: 20190418
  Serious: Yes (Life-Threatening)
  Sender: FDA-Public Use
  Company Number: IT-FRESENIUS KABI-FK201903159

PATIENT
  Age: 63 Year
  Sex: Male
  Weight: 74 kg

DRUGS (1)
  1. OXALIPLATIN (MANUFACTURER UNKNOWN) [Suspect]
     Active Substance: OXALIPLATIN
     Indication: CHEMOTHERAPY
     Route: 041
     Dates: start: 20190219, end: 20190219

REACTIONS (2)
  - Laryngeal oedema [Recovered/Resolved]
  - Dyspnoea [Recovered/Resolved]

NARRATIVE: CASE EVENT DATE: 20190219
